FAERS Safety Report 9789151 (Version 2)
Quarter: 2013Q4

REPORT INFORMATION
  Report Type: Report from Study
  Country: US (occurrence: US)
  Receive Date: 20131230
  Receipt Date: 20131230
  Transmission Date: 20140711
  Serious: Yes (Other)
  Sender: FDA-Public Use
  Company Number: US-IPSEN BIOPHARMACEUTICALS, INC.-2013-0733

PATIENT
  Age: 42 Year
  Sex: Male

DRUGS (3)
  1. SOMATULINE DEPOT INJECTION (90MG) [Suspect]
     Indication: ACROMEGALY
     Dosage: 90 MG
     Route: 058
     Dates: start: 20130124
  2. SOMATULINE DEPOT INJECTION (90MG) [Suspect]
     Dosage: 60 MG
     Route: 058
     Dates: start: 20121015, end: 20121213
  3. METFORMIN [Concomitant]
     Indication: PRODUCT USED FOR UNKNOWN INDICATION
     Dosage: NOT REPORTED
     Route: 065

REACTIONS (1)
  - Blood glucose increased [Not Recovered/Not Resolved]
